FAERS Safety Report 23246888 (Version 1)
Quarter: 2023Q4

REPORT INFORMATION
  Report Type: Spontaneous
  Country: DK (occurrence: DK)
  Receive Date: 20231130
  Receipt Date: 20231130
  Transmission Date: 20240109
  Serious: Yes (Other)
  Sender: FDA-Public Use
  Company Number: DK-PFIZER INC-PV202300185226

PATIENT
  Age: 62 Year
  Sex: Male

DRUGS (5)
  1. DOXORUBICIN [Suspect]
     Active Substance: DOXORUBICIN
     Indication: Diffuse large B-cell lymphoma
     Dosage: TREATED 6 TIMES (R-CHOP)
     Route: 065
  2. CYCLOPHOSPHAMIDE [Suspect]
     Active Substance: CYCLOPHOSPHAMIDE
     Indication: Diffuse large B-cell lymphoma
     Dosage: TREATED 6 TIMES
     Route: 065
  3. PREDNISOLONE [Suspect]
     Active Substance: PREDNISOLONE
     Indication: Diffuse large B-cell lymphoma
     Dosage: TREATED 6 TIMES
     Route: 065
  4. VINCRISTINE SULFATE [Suspect]
     Active Substance: VINCRISTINE SULFATE
     Indication: Diffuse large B-cell lymphoma
     Dosage: TREATED 6 TIMES
     Route: 065
  5. RITUXIMAB [Suspect]
     Active Substance: RITUXIMAB
     Indication: Diffuse large B-cell lymphoma
     Dosage: TREATED 6 TIMES
     Route: 065

REACTIONS (10)
  - Pulmonary embolism [Unknown]
  - Sarcoidosis [Unknown]
  - Myocardial ischaemia [Unknown]
  - Cardiac failure [Unknown]
  - Cardiac sarcoidosis [Unknown]
  - Lymphadenopathy [Unknown]
  - Lymphadenopathy mediastinal [Unknown]
  - Dyspnoea [Unknown]
  - Lung infiltration [Unknown]
  - Pleural effusion [Unknown]
